FAERS Safety Report 12218309 (Version 1)
Quarter: 2016Q1

REPORT INFORMATION
  Report Type: Spontaneous
  Country: US (occurrence: US)
  Receive Date: 20160329
  Receipt Date: 20160329
  Transmission Date: 20160526
  Serious: No
  Sender: FDA-Public Use
  Company Number: US-009507513-1603USA012485

PATIENT
  Sex: Female
  Weight: 54.42 kg

DRUGS (3)
  1. NUVARING [Suspect]
     Active Substance: ETHINYL ESTRADIOL\ETONOGESTREL
     Dosage: LEFT IN FOR THE FULL MONTH
     Route: 067
     Dates: start: 201601, end: 201602
  2. NUVARING [Suspect]
     Active Substance: ETHINYL ESTRADIOL\ETONOGESTREL
     Dosage: UNK
     Route: 067
     Dates: start: 201503, end: 201512
  3. NUVARING [Suspect]
     Active Substance: ETHINYL ESTRADIOL\ETONOGESTREL
     Dosage: LEFT IN FOR 3 WEEKS
     Route: 067
     Dates: start: 201603

REACTIONS (2)
  - Incorrect drug administration duration [Unknown]
  - Nausea [Unknown]

NARRATIVE: CASE EVENT DATE: 201601
